FAERS Safety Report 6456715-7 (Version None)
Quarter: 2009Q4

REPORT INFORMATION
  Report Type: 
  Country: None (occurrence: None)
  Receive Date: 20091125
  Receipt Date: 20091118
  Transmission Date: 20100525
  Serious: Yes (Other)
  Sender: FDA-Public Use
  Company Number: US-JNJFOC-20091106035

PATIENT
  Sex: Female
  Weight: 76.66 kg

DRUGS (3)
  1. REMICADE [Suspect]
     Dosage: DOSE:4 VIALS
     Route: 042
  2. REMICADE [Suspect]
     Dosage: DOSE:4 VIALS
     Route: 042
  3. REMICADE [Suspect]
     Indication: CROHN'S DISEASE
     Dosage: DOSE:4 VIALS
     Route: 042

REACTIONS (3)
  - IMPETIGO [None]
  - OESOPHAGEAL CANDIDIASIS [None]
  - PHARYNGITIS STREPTOCOCCAL [None]
